FAERS Safety Report 9913573 (Version 1)
Quarter: 2014Q1

REPORT INFORMATION
  Report Type: Spontaneous
  Country: US (occurrence: None)
  Receive Date: 20140218
  Receipt Date: 20140218
  Transmission Date: 20141002
  Serious: Yes (Hospitalization)
  Sender: FDA-Public Use
  Company Number: VAL_02981_2014

PATIENT
  Age: 80 Year
  Sex: Male

DRUGS (5)
  1. METOPROLOL [Suspect]
     Indication: ATRIAL FIBRILLATION
     Dosage: DF
  2. DIGOXIN [Suspect]
     Indication: ATRIAL FIBRILLATION
     Dosage: DF
  3. LISINOPRIL [Suspect]
     Indication: CARDIAC FAILURE
     Dosage: DF
  4. LASIX [Concomitant]
  5. DIURETICS [Concomitant]

REACTIONS (3)
  - Pulmonary oedema [None]
  - Palpitations [None]
  - Hyperhidrosis [None]
